FAERS Safety Report 8934833 (Version 1)
Quarter: 2012Q4

REPORT INFORMATION
  Report Type: 
  Country: US (occurrence: US)
  Receive Date: 20121129
  Receipt Date: 20121129
  Transmission Date: 20130627
  Serious: Yes (Death, Other)
  Sender: FDA-Public Use
  Company Number: US-ASTELLAS-2012US011416

PATIENT
  Sex: Female

DRUGS (2)
  1. TARCEVA [Suspect]
     Indication: MALIGNANT RESPIRATORY TRACT NEOPLASM
     Dosage: UNK
     Route: 048
  2. TARCEVA [Suspect]
     Indication: LUNG CARCINOMA CELL TYPE UNSPECIFIED STAGE 0

REACTIONS (6)
  - Death [Fatal]
  - Metastases to spine [Unknown]
  - Metastases to neck [Unknown]
  - Rash [Unknown]
  - Diarrhoea [Unknown]
  - Onychoclasis [Unknown]
